FAERS Safety Report 8119130 (Version 2)
Quarter: 2014Q1

REPORT INFORMATION
  Report Type: Spontaneous
  Country: US (occurrence: US)
  Receive Date: 20110902
  Receipt Date: 20140219
  Transmission Date: 20141002
  Serious: Yes (Hospitalization)
  Sender: FDA-Public Use
  Company Number: US-GLAXOSMITHKLINE-A0811030A

PATIENT
  Age: 57 Year
  Sex: Male
  Weight: 120.5 kg

DRUGS (4)
  1. AVANDIA [Suspect]
     Indication: TYPE 2 DIABETES MELLITUS
     Dosage: 8MG PER DAY
     Route: 048
     Dates: start: 200501, end: 200901
  2. GLUCOVANCE [Concomitant]
  3. ATENOLOL [Concomitant]
  4. VYTORIN [Concomitant]

REACTIONS (7)
  - Myocardial infarction [Not Recovered/Not Resolved]
  - Cardiac failure congestive [Unknown]
  - Cardiac disorder [Unknown]
  - Arrhythmia [Unknown]
  - Coronary artery disease [Unknown]
  - Cardiac ventricular thrombosis [Unknown]
  - Ischaemic cardiomyopathy [Unknown]
